FAERS Safety Report 9026639 (Version 1)
Quarter: 2013Q1

REPORT INFORMATION
  Report Type: Spontaneous
  Country: US (occurrence: US)
  Receive Date: 20130123
  Receipt Date: 20130123
  Transmission Date: 20140127
  Serious: Yes (Hospitalization)
  Sender: FDA-Public Use
  Company Number: PHEH2013US001525

PATIENT
  Sex: 0

DRUGS (5)
  1. TEGRETOL [Suspect]
  2. OXYCODONE [Interacting]
     Dosage: UNK UKN, UNK
  3. PHENERGAN [Interacting]
     Dosage: UNK UKN, UNK
  4. ACETAMINOPHEN [Interacting]
     Dosage: UNK UKN, UNK
  5. LYRICA [Interacting]
     Dosage: UNK UKN, UNK

REACTIONS (1)
  - Drug interaction [Unknown]
